FAERS Safety Report 5619101-5 (Version None)
Quarter: 2008Q1

REPORT INFORMATION
  Report Type: 
  Country: None (occurrence: None)
  Receive Date: 20080207
  Receipt Date: 20080131
  Transmission Date: 20080703
  Serious: Yes (Life-Threatening, Hospitalization)
  Sender: FDA-Public Use
  Company Number: FR-PFIZER INC-2008010554

PATIENT
  Sex: Male

DRUGS (2)
  1. LYRICA [Suspect]
     Indication: PROCEDURAL PAIN
  2. DIURETICS [Suspect]

REACTIONS (3)
  - GENERALISED OEDEMA [None]
  - NEPHROTIC SYNDROME [None]
  - WEIGHT DECREASED [None]
